FAERS Safety Report 14093206 (Version 1)
Quarter: 2017Q4

REPORT INFORMATION
  Report Type: Spontaneous
  Country: US (occurrence: US)
  Receive Date: 20171016
  Receipt Date: 20171016
  Transmission Date: 20180321
  Serious: No
  Sender: FDA-Public Use
  Company Number: US-PFIZER INC-2017441564

PATIENT
  Age: 63 Year
  Sex: Female

DRUGS (5)
  1. FLEXERIL [Suspect]
     Active Substance: CYCLOBENZAPRINE HYDROCHLORIDE
     Dosage: UNK
  2. SEROQUEL [Suspect]
     Active Substance: QUETIAPINE FUMARATE
     Dosage: UNK
  3. TRAMADOL. [Suspect]
     Active Substance: TRAMADOL
     Dosage: UNK
  4. BACLOFEN. [Suspect]
     Active Substance: BACLOFEN
     Dosage: UNK
  5. MORPHINE SULFATE. [Suspect]
     Active Substance: MORPHINE SULFATE

REACTIONS (1)
  - Drug hypersensitivity [Unknown]
